FAERS Safety Report 6141713-3 (Version None)
Quarter: 2009Q1

REPORT INFORMATION
  Report Type: 
  Country: None (occurrence: None)
  Receive Date: 20090331
  Receipt Date: 20090317
  Transmission Date: 20090719
  Serious: Yes (Death)
  Sender: FDA-Public Use
  Company Number: 2009S1004632

PATIENT
  Age: 73 Year
  Sex: Female

DRUGS (4)
  1. CEFUROXIME AXETIL [Suspect]
     Indication: URINARY TRACT INFECTION
     Dosage: 500 MG; TWICE A DAY; ORAL
     Route: 048
  2. FUROSEMIDE [Suspect]
     Indication: RENAL FAILURE CHRONIC
  3. LISINOPRIL [Concomitant]
  4. CALCIUM CARBONATE [Concomitant]

REACTIONS (10)
  - ARTHRALGIA [None]
  - GASTROINTESTINAL HAEMORRHAGE [None]
  - GRANULOCYTOPENIA [None]
  - HYPERTENSION [None]
  - LEUKOPENIA [None]
  - MULTI-ORGAN FAILURE [None]
  - PROTEIN TOTAL DECREASED [None]
  - SEPSIS [None]
  - TOXIC EPIDERMAL NECROLYSIS [None]
  - TREATMENT FAILURE [None]
